FAERS Safety Report 8259095-X (Version None)
Quarter: 2012Q2

REPORT INFORMATION
  Report Type: 
  Country: None (occurrence: None)
  Receive Date: 20120404
  Receipt Date: 20120226
  Transmission Date: 20120825
  Serious: Yes (Hospitalization, Other)
  Sender: FDA-Public Use
  Company Number: US-ROCHE-1054240

PATIENT
  Sex: Female

DRUGS (1)
  1. XELODA [Suspect]
     Indication: BREAST CANCER METASTATIC
     Route: 048
     Dates: start: 20111211, end: 20120227

REACTIONS (7)
  - DIARRHOEA [None]
  - JOINT SWELLING [None]
  - DECREASED APPETITE [None]
  - NAUSEA [None]
  - MINERAL SUPPLEMENTATION [None]
  - DEHYDRATION [None]
  - VOMITING [None]
